FAERS Safety Report 15469529 (Version 1)
Quarter: 2018Q4

REPORT INFORMATION
  Report Type: Spontaneous
  Country: BR (occurrence: BR)
  Receive Date: 20181005
  Receipt Date: 20181005
  Transmission Date: 20190205
  Serious: Yes (Death)
  Sender: FDA-Public Use
  Company Number: BR-SAKK-2018SA271453AA

PATIENT
  Age: 5 Year
  Sex: Male

DRUGS (1)
  1. CLEXANE [Suspect]
     Active Substance: ENOXAPARIN SODIUM
     Indication: MATERNAL EXPOSURE DURING PREGNANCY
     Dosage: 20 MG
     Route: 064

REACTIONS (2)
  - Brain cancer metastatic [Fatal]
  - Exposure during pregnancy [Unknown]
